FAERS Safety Report 10550742 (Version 1)
Quarter: 2014Q4

REPORT INFORMATION
  Report Type: Spontaneous
  Country: VN (occurrence: VN)
  Receive Date: 20141029
  Receipt Date: 20141029
  Transmission Date: 20150529
  Serious: Yes (Hospitalization)
  Sender: FDA-Public Use
  Company Number: VN-009507513-1410VNM013866

PATIENT
  Sex: Female

DRUGS (1)
  1. COZAAR [Suspect]
     Active Substance: LOSARTAN POTASSIUM
     Dosage: DAILY DOSAGE WAS 1 TABLET IN THE MORNING
     Route: 048
     Dates: start: 2009

REACTIONS (2)
  - Cardiac failure [Unknown]
  - Hypertension [Unknown]
